FAERS Safety Report 8808833 (Version 1)
Quarter: 2012Q4

REPORT INFORMATION
  Report Type: 
  Country: US (occurrence: US)
  Receive Date: 20120926
  Receipt Date: 20120926
  Transmission Date: 20130627
  Serious: No
  Sender: FDA-Public Use
  Company Number: US-PFIZER INC-2012234139

PATIENT
  Age: 52 Year
  Sex: Female
  Weight: 78.46 kg

DRUGS (13)
  1. ZYVOX [Suspect]
     Indication: STAPHYLOCOCCAL INFECTION
     Dosage: UNK
     Route: 042
     Dates: start: 20120918, end: 20120920
  2. ACULAR [Concomitant]
     Dosage: UNK
     Route: 047
  3. ZOCOR [Concomitant]
     Dosage: UNK
  4. DEMADEX [Concomitant]
     Dosage: UNK
  5. FEOSOL [Concomitant]
     Dosage: UNK
  6. FLUVIRIN [Concomitant]
     Dosage: UNK
  7. TIMOLOL [Concomitant]
     Dosage: UNK
  8. INSULIN [Concomitant]
     Dosage: UNK
  9. VIGAMOX [Concomitant]
     Dosage: UNK
  10. PROTONIX [Concomitant]
     Dosage: UNK
  11. LOVENOX [Concomitant]
     Dosage: UNK
  12. LEXAPRO [Concomitant]
     Dosage: UNK
  13. ZESTRIL [Concomitant]
     Dosage: UNK

REACTIONS (1)
  - Vomiting [Not Recovered/Not Resolved]
